FAERS Safety Report 10167663 (Version 2)
Quarter: 2014Q2

REPORT INFORMATION
  Report Type: Spontaneous
  Country: JP (occurrence: JP)
  Receive Date: 20140512
  Receipt Date: 20140530
  Transmission Date: 20141212
  Serious: Yes (Other)
  Sender: FDA-Public Use
  Company Number: JP-B.I. PHARMACEUTICALS,INC./RIDGEFIELD-2014-BI-20571NB

PATIENT
  Age: 75 Year
  Sex: Male

DRUGS (6)
  1. MICAMLO COMBINATION [Suspect]
     Indication: HYPERTENSION
     Dosage: DOSE PER APPLICATION: TELMISARTAN 40MG/AMLODIPINE 5MG; DAILY DOSE: 1 DF
     Route: 048
     Dates: start: 2011, end: 20140324
  2. SPIRIVA [Concomitant]
     Indication: CHRONIC OBSTRUCTIVE PULMONARY DISEASE
     Dosage: 1 DF
     Route: 065
  3. SPIROPENT [Concomitant]
     Indication: CHRONIC OBSTRUCTIVE PULMONARY DISEASE
     Route: 048
     Dates: end: 20140324
  4. UNIPHYL LA [Concomitant]
     Indication: CHRONIC OBSTRUCTIVE PULMONARY DISEASE
     Route: 048
     Dates: end: 20140324
  5. EMPYNASE P [Concomitant]
     Indication: CHRONIC OBSTRUCTIVE PULMONARY DISEASE
     Route: 048
     Dates: end: 20140324
  6. AMBROXOL HYDROCHLORIDE [Concomitant]
     Indication: CHRONIC OBSTRUCTIVE PULMONARY DISEASE
     Route: 048
     Dates: end: 20140324

REACTIONS (3)
  - Empyema [Not Recovered/Not Resolved]
  - Hepatic function abnormal [Recovered/Resolved]
  - Headache [Recovered/Resolved]
